FAERS Safety Report 5063747-2 (Version None)
Quarter: 2006Q3

REPORT INFORMATION
  Report Type: 
  Country: None (occurrence: None)
  Receive Date: 20060703
  Receipt Date: 20051109
  Transmission Date: 20061208
  Serious: No
  Sender: FDA-Public Use
  Company Number: 2005S1011003

PATIENT
  Age: 47 Year
  Sex: Male

DRUGS (5)
  1. CLOZAPINE [Suspect]
     Indication: MENTAL DISORDER
     Dosage: 700 MG; DQ; ORAL
     Route: 048
  2. BUPROPION HCL [Concomitant]
  3. CLONAZEPAM [Concomitant]
  4. SETRALINE HCL [Concomitant]
  5. BENZTROPINE MESYLATE [Concomitant]

REACTIONS (2)
  - GRANULOCYTOPENIA [None]
  - LEUKOPENIA [None]
